FAERS Safety Report 7408728-6 (Version None)
Quarter: 2011Q1

REPORT INFORMATION
  Report Type: 
  Country: None (occurrence: None)
  Receive Date: 20110301
  Receipt Date: 20101019
  Transmission Date: 20110831
  Serious: Yes (Hospitalization)
  Sender: FDA-Public Use
  Company Number: US-JNJFOC-20100703340

PATIENT
  Age: 24 Month
  Sex: Female
  Weight: 12.0203 kg

DRUGS (7)
  1. CHILDREN TYLENOL (ACETAMINOPHEN) [Concomitant]
  2. CHILDREN'S MOTRIN [Suspect]
     Indication: PYREXIA
     Dosage: 100 MG, ORAL
     Route: 048
     Dates: start: 20100511, end: 20100511
  3. CHILDREN'S MOTRIN [Suspect]
     Indication: MALAISE
     Dosage: 100 MG, ORAL
     Route: 048
     Dates: start: 20100511, end: 20100511
  4. CHILDREN'S MOTRIN [Suspect]
     Indication: ILL-DEFINED DISORDER
     Dosage: 100 MG, ORAL
     Route: 048
     Dates: start: 20100511, end: 20100511
  5. CHILDREN'S MOTRIN [Suspect]
     Indication: PYREXIA
     Dosage: 100 MG, ORAL
     Route: 048
     Dates: start: 20100512
  6. CHILDREN'S MOTRIN [Suspect]
     Indication: MALAISE
     Dosage: 100 MG, ORAL
     Route: 048
     Dates: start: 20100512
  7. CHILDREN'S MOTRIN [Suspect]
     Indication: ILL-DEFINED DISORDER
     Dosage: 100 MG, ORAL
     Route: 048
     Dates: start: 20100512

REACTIONS (4)
  - HYPERSENSITIVITY [None]
  - ANGIOEDEMA [None]
  - IDIOPATHIC URTICARIA [None]
  - PRODUCT QUALITY ISSUE [None]
